FAERS Safety Report 6066359-7 (Version None)
Quarter: 2009Q1

REPORT INFORMATION
  Report Type: 
  Country: None (occurrence: None)
  Receive Date: 20090203
  Receipt Date: 20090120
  Transmission Date: 20090719
  Serious: Yes (Hospitalization)
  Sender: FDA-Public Use
  Company Number: 230675K09USA

PATIENT
  Age: 43 Year
  Sex: Female

DRUGS (10)
  1. REBIF [Suspect]
     Indication: MULTIPLE SCLEROSIS
     Dosage: 44 MCG, 3 IN 1 WEEKS, SUBCUTANEOUS
     Route: 058
     Dates: start: 20031230
  2. HUMALOG INSULIN (INSULIN LISPRO) [Concomitant]
  3. LANTUS [Concomitant]
  4. ACTOS [Concomitant]
  5. LIPITOR [Concomitant]
  6. PROZAC [Concomitant]
  7. TOPAMAX [Concomitant]
  8. LORTAB (VICODIN) [Concomitant]
  9. FLEXERIL [Concomitant]
  10. PROVIGIL [Concomitant]

REACTIONS (2)
  - HAEMOPTYSIS [None]
  - PNEUMONIA [None]
